FAERS Safety Report 13753801 (Version 1)
Quarter: 2017Q3

REPORT INFORMATION
  Report Type: Spontaneous
  Country: US (occurrence: US)
  Receive Date: 20170714
  Receipt Date: 20170714
  Transmission Date: 20171127
  Serious: Yes (Death, Other)
  Sender: FDA-Public Use
  Company Number: US-APOTEX-2017AP014861

PATIENT
  Age: 58 Year
  Sex: Female

DRUGS (1)
  1. DIPYRIDAMOLE INJECTION USP [Suspect]
     Active Substance: DIPYRIDAMOLE
     Indication: CARDIAC PHARMACOLOGIC STRESS TEST
     Dosage: 0.56 MG/KG, INFUSED OVER 4 MIN
     Route: 065

REACTIONS (2)
  - Cardiac arrest [Fatal]
  - Ventricular tachycardia [Fatal]
